FAERS Safety Report 4347362-1 (Version None)
Quarter: 2004Q2

REPORT INFORMATION
  Report Type: 
  Country: None (occurrence: None)
  Receive Date: 20040422
  Receipt Date: 20031118
  Transmission Date: 20050107
  Serious: Yes (Hospitalization)
  Sender: FDA-Public Use
  Company Number: US-SHR-03-013925

PATIENT
  Sex: Male

DRUGS (3)
  1. BETAPACE AF [Suspect]
     Indication: ATRIAL FIBRILLATION
     Dosage: 120 MG, 3X/DAY, ORAL
     Route: 048
     Dates: start: 20000101, end: 20031028
  2. COMADIN ^BOOTS^ (WARFARIN SODIUM) [Concomitant]
  3. PRAVACHOL [Concomitant]

REACTIONS (2)
  - ATRIAL FIBRILLATION [None]
  - DIZZINESS [None]
